FAERS Safety Report 8515220-4 (Version None)
Quarter: 2012Q3

REPORT INFORMATION
  Report Type: 
  Country: None (occurrence: None)
  Receive Date: 20120717
  Receipt Date: 20120710
  Transmission Date: 20120928
  Serious: Yes (Hospitalization)
  Sender: FDA-Public Use
  Company Number: US-BRISTOL-MYERS SQUIBB COMPANY-16756801

PATIENT
  Sex: Male

DRUGS (1)
  1. ABILIFY [Suspect]

REACTIONS (1)
  - HALLUCINATION, AUDITORY [None]
